FAERS Safety Report 9331626 (Version 2)
Quarter: 2013Q3

REPORT INFORMATION
  Report Type: Spontaneous
  Country: US (occurrence: None)
  Receive Date: 20130603
  Receipt Date: 20130816
  Transmission Date: 20140515
  Serious: Yes (Death)
  Sender: FDA-Public Use
  Company Number: UTC-032528

PATIENT
  Age: 84 Year
  Sex: Female
  Weight: 61.4 kg

DRUGS (11)
  1. TREPROSTINIL [Suspect]
     Indication: COR PULMONALE CHRONIC
     Dosage: 216 MCG (54 MCG, 4 IN 1 D), INHALATION
     Route: 055
     Dates: start: 20100422
  2. TRACLEER [Concomitant]
     Indication: PULMONARY ARTERIAL HYPERTENSION
     Dates: start: 200203
  3. REVATIO (SILDENAFIL CITRATE) (UNKNOWN) (SILDENAFIL) [Concomitant]
     Indication: PULMONARY ARTERIAL HYPERTENSION
     Dates: start: 20080929
  4. ASPIRIN (ACETYLSALICYLIC ACID) [Concomitant]
  5. FUROSEMIDE [Concomitant]
  6. PANTOPRAZOLE [Concomitant]
  7. DOCUSATE [Concomitant]
  8. LEVOTHYROXINE [Concomitant]
  9. SENNA ALEXANDRINA [Concomitant]
  10. HALOPERIDOL [Concomitant]
  11. PARACETAMOL [Concomitant]

REACTIONS (2)
  - Death [None]
  - Respiratory failure [None]
